FAERS Safety Report 17439420 (Version 1)
Quarter: 2020Q1

REPORT INFORMATION
  Report Type: Spontaneous
  Country: US (occurrence: US)
  Receive Date: 20200219
  Receipt Date: 20200219
  Transmission Date: 20200409
  Serious: Yes (Other)
  Sender: FDA-Public Use
  Company Number: None

PATIENT
  Age: 67 Year
  Sex: Male
  Weight: 60.5 kg

DRUGS (4)
  1. ANDROGEL [Suspect]
     Active Substance: TESTOSTERONE
     Indication: HYPOGONADISM
     Route: 062
     Dates: start: 20190927
  2. LEVETIRACETAM 500MG BID [Concomitant]
  3. POLYETHYLENE GLYCOL 17GM DAILY [Concomitant]
  4. DENOSUMAB 60MG SUB Q EVERY 6 MO [Concomitant]

REACTIONS (2)
  - Acquired phimosis [None]
  - Oedema [None]

NARRATIVE: CASE EVENT DATE: 20191215
